FAERS Safety Report 8030698-0 (Version None)
Quarter: 2012Q1

REPORT INFORMATION
  Report Type: 
  Country: None (occurrence: None)
  Receive Date: 20120109
  Receipt Date: 20120103
  Transmission Date: 20120608
  Serious: Yes (Other)
  Sender: FDA-Public Use
  Company Number: PHHY2011AU109924

PATIENT
  Sex: Female

DRUGS (2)
  1. GILENYA [Suspect]
     Indication: MULTIPLE SCLEROSIS
     Dosage: 1 DF, QD
     Route: 048
     Dates: start: 20111210, end: 20111211
  2. GILENYA [Suspect]
     Dosage: 1 DF, QD
     Route: 048
     Dates: end: 20111214

REACTIONS (5)
  - RASH PRURITIC [None]
  - ERYTHEMA [None]
  - DRUG HYPERSENSITIVITY [None]
  - FLUSHING [None]
  - RASH [None]
